FAERS Safety Report 10094552 (Version 1)
Quarter: 2014Q2

REPORT INFORMATION
  Report Type: Spontaneous
  Country: DK (occurrence: CA)
  Receive Date: 20140422
  Receipt Date: 20140422
  Transmission Date: 20141212
  Serious: Yes (Other)
  Sender: FDA-Public Use
  Company Number: CA-FRI-1000066659

PATIENT
  Sex: Female

DRUGS (2)
  1. ESCITALOPRAM [Suspect]
     Dosage: DAILY DOSE NOT REPORTED
     Route: 050
  2. GILENYA [Suspect]
     Dosage: 0.5 MG
     Route: 048

REACTIONS (5)
  - Chills [Unknown]
  - Depressed level of consciousness [Unknown]
  - Dizziness [Unknown]
  - Drug withdrawal syndrome [Unknown]
  - Sleep disorder [Unknown]
